FAERS Safety Report 6572699-5 (Version None)
Quarter: 2010Q1

REPORT INFORMATION
  Report Type: 
  Country: None (occurrence: None)
  Receive Date: 20100205
  Receipt Date: 20100118
  Transmission Date: 20100710
  Serious: Yes (Other)
  Sender: FDA-Public Use
  Company Number: US-JNJFOC-20100102870

PATIENT
  Age: 74 Year
  Sex: Female
  Weight: 77.11 kg

DRUGS (3)
  1. TYLENOL (CAPLET) [Suspect]
     Route: 048
  2. TYLENOL (CAPLET) [Suspect]
     Indication: ARTHRITIS
     Route: 048
  3. HYPERTENSION MEDICATION [Concomitant]
     Indication: HYPERTENSION

REACTIONS (4)
  - DIZZINESS [None]
  - NAUSEA [None]
  - PRODUCT ODOUR ABNORMAL [None]
  - VOMITING [None]
